FAERS Safety Report 5018026-6 (Version None)
Quarter: 2006Q2

REPORT INFORMATION
  Report Type: 
  Country: None (occurrence: None)
  Receive Date: 20060530
  Receipt Date: 20050331
  Transmission Date: 20061013
  Serious: Yes (Disabling)
  Sender: FDA-Public Use
  Company Number: 2005042051

PATIENT
  Age: 84 Year
  Sex: Female
  Weight: 82 kg

DRUGS (5)
  1. LYRICA [Suspect]
     Indication: PAIN
     Dosage: 150 M G (50 MG, 3 IN 1 D), ORAL
     Route: 048
     Dates: start: 20050221, end: 20050225
  2. AMITRIPTYLINE HCL [Concomitant]
  3. NULYTELY (MACROGOL, POTASSIUM CHLORIDE, SODIUM BICARBONATE, SODIUM CHL [Concomitant]
  4. CODEINE PHOSPHATE AND ACETAMINOPHEN [Concomitant]
  5. FELODPINE (FELODIPINE) [Concomitant]

REACTIONS (2)
  - DYSKINESIA [None]
  - MUSCLE TWITCHING [None]
